FAERS Safety Report 14458059 (Version 1)
Quarter: 2018Q1

REPORT INFORMATION
  Report Type: Spontaneous
  Country: US (occurrence: US)
  Receive Date: 20180130
  Receipt Date: 20180130
  Transmission Date: 20180509
  Serious: Yes (Other)
  Sender: FDA-Public Use
  Company Number: US-PFIZER INC-2018034072

PATIENT
  Age: 72 Year
  Sex: Female

DRUGS (3)
  1. IDARUBICIN [Concomitant]
     Active Substance: IDARUBICIN
     Indication: ACUTE MYELOID LEUKAEMIA
     Dosage: 20 MG (12 MG/M2), CYCLIC
  2. CYTARABINE. [Suspect]
     Active Substance: CYTARABINE
     Indication: ACUTE MYELOID LEUKAEMIA
     Dosage: 170 MG (100 MG/M2), CYCLIC
  3. CYTARABINE. [Suspect]
     Active Substance: CYTARABINE
     Dosage: 2600 MG (1566 MG/M2), CYCLIC (ON DAY 22)

REACTIONS (1)
  - Hepatotoxicity [Unknown]
